FAERS Safety Report 24354253 (Version 1)
Quarter: 2024Q3

REPORT INFORMATION
  Report Type: Spontaneous
  Country: US (occurrence: US)
  Receive Date: 20240923
  Receipt Date: 20240923
  Transmission Date: 20241017
  Serious: No
  Sender: PFIZER
  Company Number: US-PFIZER INC-202400259502

PATIENT
  Age: 48 Year
  Sex: Male

DRUGS (3)
  1. TOFACITINIB CITRATE [Suspect]
     Active Substance: TOFACITINIB CITRATE
     Indication: Rheumatoid arthritis
     Dosage: 5 MG, 2X/DAY
     Route: 048
     Dates: start: 2023
  2. TOFACITINIB CITRATE [Suspect]
     Active Substance: TOFACITINIB CITRATE
     Indication: Arthritis
     Dosage: 11 MG, DAILY
     Route: 048
  3. TOFACITINIB CITRATE [Suspect]
     Active Substance: TOFACITINIB CITRATE
     Indication: Dermatomyositis

REACTIONS (7)
  - Hypoaesthesia [Unknown]
  - Arthralgia [Unknown]
  - Fatigue [Unknown]
  - Joint stiffness [Unknown]
  - Memory impairment [Unknown]
  - Ocular hyperaemia [Unknown]
  - Raynaud^s phenomenon [Unknown]
